FAERS Safety Report 9511631 (Version 2)
Quarter: 2013Q4

REPORT INFORMATION
  Report Type: Report from Study
  Country: CN (occurrence: CN)
  Receive Date: 20130910
  Receipt Date: 20131022
  Transmission Date: 20140711
  Serious: Yes (Hospitalization)
  Sender: FDA-Public Use
  Company Number: CN-AMGEN-CHNCT2013063221

PATIENT
  Age: 60 Year
  Sex: Female

DRUGS (6)
  1. DARBEPOETIN ALFA [Suspect]
     Indication: NEPHROGENIC ANAEMIA
     Dosage: 3000 IU, Q2WK
     Route: 042
     Dates: start: 20130826
  2. EPOETIN ALFA [Suspect]
     Indication: NEPHROGENIC ANAEMIA
     Dosage: 3000 IU, 3X/WEEK
     Route: 042
     Dates: start: 20130701, end: 20130823
  3. AMLODIPINE BESYLATE [Concomitant]
     Dosage: 5 MG, BID
     Route: 065
     Dates: start: 20130619
  4. BENAZEPRIL [Concomitant]
     Dosage: 10 MG, BID
     Route: 065
     Dates: start: 20130619
  5. FELODIPINE [Concomitant]
     Dosage: 5 MG, BID
     Route: 065
     Dates: start: 20130619
  6. CALCITRIOL [Concomitant]
     Dosage: 0.5 MUG, 2X/WEEK
     Route: 065
     Dates: start: 20130619

REACTIONS (1)
  - Upper gastrointestinal haemorrhage [Recovered/Resolved]
